FAERS Safety Report 12297357 (Version 2)
Quarter: 2016Q2

REPORT INFORMATION
  Report Type: Report from Study
  Country: BR (occurrence: BR)
  Receive Date: 20160422
  Receipt Date: 20160527
  Transmission Date: 20160815
  Serious: Yes (Death, Hospitalization, Other)
  Sender: FDA-Public Use
  Company Number: BR-ABBVIE-16K-020-1609512-00

PATIENT
  Age: 67 Year
  Sex: Female
  Weight: 60 kg

DRUGS (2)
  1. HUMIRA [Suspect]
     Active Substance: ADALIMUMAB
     Route: 058
  2. HUMIRA [Suspect]
     Active Substance: ADALIMUMAB
     Indication: CROHN^S DISEASE
     Route: 058
     Dates: start: 20120101

REACTIONS (14)
  - Gastrointestinal disorder [Unknown]
  - Renal failure [Unknown]
  - Gastrointestinal inflammation [Unknown]
  - Haematemesis [Unknown]
  - Blood pressure abnormal [Unknown]
  - Drug ineffective [Unknown]
  - Intestinal obstruction [Unknown]
  - Post procedural complication [Unknown]
  - Intestinal operation [Unknown]
  - Crohn^s disease [Unknown]
  - Drug effect decreased [Unknown]
  - Death [Fatal]
  - Multiple organ dysfunction syndrome [Unknown]
  - Colitis ulcerative [Unknown]

NARRATIVE: CASE EVENT DATE: 2015
